FAERS Safety Report 4837453-0 (Version None)
Quarter: 2005Q4

REPORT INFORMATION
  Report Type: 
  Country: None (occurrence: None)
  Receive Date: 20051128
  Receipt Date: 20051115
  Transmission Date: 20060501
  Serious: Yes (Hospitalization)
  Sender: FDA-Public Use
  Company Number: DE-JNJFOC-20051103885

PATIENT
  Age: 45 Year
  Sex: Female

DRUGS (14)
  1. RISPERDAL [Suspect]
     Route: 048
  2. RISPERDAL [Suspect]
     Route: 048
  3. RISPERDAL [Suspect]
     Route: 048
  4. RISPERDAL [Suspect]
     Indication: DRUG USE FOR UNKNOWN INDICATION
     Route: 048
  5. LEPONEX [Suspect]
     Route: 048
  6. LEPONEX [Suspect]
     Route: 048
  7. LEPONEX [Suspect]
     Route: 048
  8. LEPONEX [Suspect]
     Route: 048
  9. LEPONEX [Suspect]
     Route: 048
  10. LEPONEX [Suspect]
     Route: 048
  11. LEPONEX [Suspect]
     Route: 048
  12. LEPONEX [Suspect]
     Route: 048
  13. LEPONEX [Suspect]
     Route: 048
  14. LEPONEX [Suspect]
     Indication: DRUG USE FOR UNKNOWN INDICATION
     Route: 048

REACTIONS (2)
  - GRANULOCYTOSIS [None]
  - PYREXIA [None]
